FAERS Safety Report 9209565 (Version 1)
Quarter: 2013Q2

REPORT INFORMATION
  Report Type: Spontaneous
  Country: US (occurrence: None)
  Receive Date: 20130403
  Receipt Date: 20130403
  Transmission Date: 20140414
  Serious: Yes (Hospitalization)
  Sender: FDA-Public Use
  Company Number: None

PATIENT
  Age: 29 Year
  Sex: Male
  Weight: 117.94 kg

DRUGS (2)
  1. SEROQUEL [Suspect]
     Indication: BIPOLAR DISORDER
     Dates: start: 200401, end: 201303
  2. SEROQUEL [Suspect]
     Indication: INSOMNIA
     Dates: start: 200401, end: 201303

REACTIONS (4)
  - Heart rate increased [None]
  - Tremor [None]
  - Muscle spasms [None]
  - Convulsion [None]
